FAERS Safety Report 20280396 (Version 1)
Quarter: 2022Q1

REPORT INFORMATION
  Report Type: Spontaneous
  Country: CN (occurrence: CN)
  Receive Date: 20220103
  Receipt Date: 20220103
  Transmission Date: 20220424
  Serious: Yes (Hospitalization)
  Sender: FDA-Public Use
  Company Number: CN-NOVARTISPH-NVSC2021CN300414

PATIENT
  Age: 28 Year
  Sex: Female
  Weight: 75 kg

DRUGS (5)
  1. TEGRETOL [Suspect]
     Active Substance: CARBAMAZEPINE
     Indication: Epilepsy
     Dosage: 0.2 G, BID
     Route: 048
     Dates: start: 20211007, end: 20211210
  2. FEXOFENADINE [Concomitant]
     Active Substance: FEXOFENADINE HYDROCHLORIDE
     Indication: Antiallergic therapy
     Dosage: UNK
     Route: 065
  3. KETOTIFEN [Concomitant]
     Active Substance: KETOTIFEN
     Indication: Antiallergic therapy
     Dosage: UNK
     Route: 065
  4. LORATADINE [Concomitant]
     Active Substance: LORATADINE
     Indication: Antiallergic therapy
     Dosage: UNK
     Route: 065
  5. DESONIDE [Concomitant]
     Active Substance: DESONIDE
     Indication: Erythema
     Dosage: UNK
     Route: 061

REACTIONS (1)
  - Drug eruption [Recovering/Resolving]

NARRATIVE: CASE EVENT DATE: 20211127
